FAERS Safety Report 7788174-6 (Version None)
Quarter: 2011Q3

REPORT INFORMATION
  Report Type: 
  Country: None (occurrence: None)
  Receive Date: 20110930
  Receipt Date: 20110919
  Transmission Date: 20111222
  Serious: Yes (Other)
  Sender: FDA-Public Use
  Company Number: CA-JNJFOC-20110909616

PATIENT
  Sex: Male
  Weight: 81.5 kg

DRUGS (4)
  1. SUPEUDOL [Concomitant]
     Dosage: 10 TID AS NECESSARY
     Route: 065
  2. OXYCONTIN [Concomitant]
     Dosage: AS NECESSARY , GREATER THAN 5 YEARS
     Route: 065
  3. PREDNISONE [Concomitant]
     Dosage: GREATER THAN 5 YEARS
     Route: 065
  4. REMICADE [Suspect]
     Indication: ANKYLOSING SPONDYLITIS
     Route: 042
     Dates: start: 20061214, end: 20110919

REACTIONS (1)
  - PILONIDAL CYST [None]
